FAERS Safety Report 13977371 (Version 6)
Quarter: 2018Q2

REPORT INFORMATION
  Report Type: Report from Study
  Country: CN (occurrence: CN)
  Receive Date: 20170915
  Receipt Date: 20180528
  Transmission Date: 20180711
  Serious: Yes (Other)
  Sender: FDA-Public Use
  Company Number: PHHY2017CN134492

PATIENT
  Age: 24 Year
  Sex: Male

DRUGS (245)
  1. MYFORTIC [Suspect]
     Active Substance: MYCOPHENOLATE SODIUM
     Indication: PROPHYLAXIS AGAINST TRANSPLANT REJECTION
     Dosage: 1080 MG, QD
     Route: 065
     Dates: start: 20151030, end: 20151104
  2. MYFORTIC [Suspect]
     Active Substance: MYCOPHENOLATE SODIUM
     Dosage: 540 MG, QD
     Route: 065
     Dates: start: 20151111, end: 20151112
  3. BASILIXIMAB [Suspect]
     Active Substance: BASILIXIMAB
     Indication: RENAL TRANSPLANT
     Dosage: 20 MG, QD
     Route: 065
     Dates: start: 20151028, end: 20151028
  4. BASILIXIMAB [Suspect]
     Active Substance: BASILIXIMAB
     Dosage: 20 MG, QD
     Route: 065
     Dates: start: 20151101, end: 20151101
  5. METHYLPREDNISOLONE. [Suspect]
     Active Substance: METHYLPREDNISOLONE
     Dosage: 400 MG, QD
     Route: 065
     Dates: start: 20151029, end: 20151029
  6. METHYLPREDNISOLONE. [Suspect]
     Active Substance: METHYLPREDNISOLONE
     Dosage: 40 MG, QD
     Route: 065
     Dates: start: 20151105, end: 20151105
  7. METHYLPREDNISOLONE. [Suspect]
     Active Substance: METHYLPREDNISOLONE
     Dosage: 40 MG, QD
     Route: 065
     Dates: start: 20151105, end: 20151112
  8. METHYLPREDNISOLONE. [Suspect]
     Active Substance: METHYLPREDNISOLONE
     Dosage: 160 MG, QD
     Route: 065
     Dates: start: 20151120, end: 20151120
  9. TACROLIMUS. [Suspect]
     Active Substance: TACROLIMUS
     Dosage: 2 MG, QD
     Route: 065
     Dates: start: 20151105, end: 20151108
  10. TACROLIMUS. [Suspect]
     Active Substance: TACROLIMUS
     Dosage: 1.5 MG, QD
     Route: 065
     Dates: start: 20151109, end: 20151110
  11. SODIUM CHLORIDE. [Concomitant]
     Active Substance: SODIUM CHLORIDE
     Dosage: 400 ML, PRN
     Route: 042
     Dates: start: 20151121, end: 20151121
  12. SODIUM CHLORIDE. [Concomitant]
     Active Substance: SODIUM CHLORIDE
     Dosage: 50 ML, PRN
     Route: 042
     Dates: start: 20151116, end: 20151116
  13. BETALOC [Concomitant]
     Active Substance: METOPROLOL TARTRATE
     Dosage: 5 MG, PRN
     Route: 048
     Dates: start: 20151029, end: 20151029
  14. BETALOC [Concomitant]
     Active Substance: METOPROLOL TARTRATE
     Dosage: 47.5 MG, PRN
     Route: 042
     Dates: start: 20151029, end: 20151029
  15. LINEZOLID. [Concomitant]
     Active Substance: LINEZOLID
     Indication: ANTI-INFECTIVE THERAPY
     Dosage: 300 MG, PRN
     Route: 042
     Dates: start: 20151120, end: 20151120
  16. LINEZOLID. [Concomitant]
     Active Substance: LINEZOLID
     Dosage: 300 MG, BID
     Route: 042
     Dates: start: 20151120, end: 20151122
  17. CALCIUM GLUCONATE. [Concomitant]
     Active Substance: CALCIUM GLUCONATE
     Indication: MINERAL SUPPLEMENTATION
     Dosage: 60 ML, PRN
     Route: 042
     Dates: start: 20151120, end: 20151120
  18. CALCIUM GLUCONATE. [Concomitant]
     Active Substance: CALCIUM GLUCONATE
     Dosage: 10 ML, PRN
     Route: 042
     Dates: start: 20151121, end: 20151121
  19. ALPROSTADIL. [Concomitant]
     Active Substance: ALPROSTADIL
     Dosage: 10 UG, PRN
     Route: 042
     Dates: start: 20151029, end: 20151029
  20. ALPROSTADIL. [Concomitant]
     Active Substance: ALPROSTADIL
     Dosage: 20 UG, QD
     Route: 042
     Dates: start: 20180319, end: 20180319
  21. HUMAN ALBUMIN [Concomitant]
     Active Substance: ALBUMIN HUMAN
     Dosage: 10 G, PRN
     Route: 042
     Dates: start: 20151116, end: 20151116
  22. COMPOUND SODIUM LACTATE RINGER LACTAT [Concomitant]
     Dosage: 1000 ML, PRN
     Route: 042
     Dates: start: 20151029, end: 20151029
  23. COMPOUND SODIUM LACTATE RINGER LACTAT [Concomitant]
     Dosage: 500 ML, PRN
     Route: 042
     Dates: start: 20151031, end: 20151031
  24. SODIUM BICARBONATE. [Concomitant]
     Active Substance: SODIUM BICARBONATE
     Dosage: 125 ML, PRN
     Route: 042
     Dates: start: 20151122, end: 20151122
  25. SODIUM BICARBONATE. [Concomitant]
     Active Substance: SODIUM BICARBONATE
     Dosage: 2000 ML, QD
     Route: 042
     Dates: start: 20171128, end: 20171128
  26. PIPERACILLIN/TAZOBACTAM [Concomitant]
     Active Substance: PIPERACILLIN SODIUM\TAZOBACTAM SODIUM
     Dosage: 1 DF, PRN
     Route: 042
     Dates: start: 20151122, end: 20151122
  27. VIT K1 [Concomitant]
     Active Substance: PHYTONADIONE
     Indication: HAEMOSTASIS
     Dosage: 10 MG, PRN
     Route: 042
     Dates: start: 20151122, end: 20151122
  28. AMBROXOL HYDROCHLORIDE [Concomitant]
     Active Substance: AMBROXOL HYDROCHLORIDE
     Dosage: 150 MG, QD
     Route: 042
     Dates: start: 20151117, end: 20151120
  29. AMBROXOL HYDROCHLORIDE [Concomitant]
     Active Substance: AMBROXOL HYDROCHLORIDE
     Dosage: 30 MG, PRN
     Route: 042
     Dates: start: 20151120, end: 20151120
  30. AMBROXOL HYDROCHLORIDE [Concomitant]
     Active Substance: AMBROXOL HYDROCHLORIDE
     Dosage: 1350 MG, PRN
     Route: 042
     Dates: start: 20151120, end: 20151120
  31. DILTIAZEM HYDROCHLORIDE. [Concomitant]
     Active Substance: DILTIAZEM HYDROCHLORIDE
     Indication: PRODUCT USED FOR UNKNOWN INDICATION
     Dosage: 30 MG, BID
     Route: 048
     Dates: start: 20151029, end: 20151101
  32. IMODIUM [Concomitant]
     Active Substance: LOPERAMIDE HYDROCHLORIDE
     Indication: DIARRHOEA
     Dosage: 4 MG, PRN
     Route: 048
     Dates: start: 20151101, end: 20151101
  33. CETIRIZINE HYDROCHLORIDE. [Concomitant]
     Active Substance: CETIRIZINE HYDROCHLORIDE
     Indication: HYPERSENSITIVITY
     Dosage: 10 MG, PRN
     Route: 048
     Dates: start: 20151105, end: 20151105
  34. INSULIN [Concomitant]
     Active Substance: INSULIN NOS
     Dosage: 4 IU, PRN
     Route: 042
     Dates: start: 20151120, end: 20151120
  35. MAGNESIUM ISOGLYCYRRHIZINATE [Concomitant]
     Active Substance: MAGNESIUM ISOGLYCYRRHIZINATE
     Dosage: 40 MG, QD
     Route: 042
     Dates: start: 20151029, end: 20151031
  36. MAGNESIUM ISOGLYCYRRHIZINATE [Concomitant]
     Active Substance: MAGNESIUM ISOGLYCYRRHIZINATE
     Dosage: 40 ML, PRN
     Route: 042
     Dates: start: 20151121, end: 20151121
  37. RECOMBINANT HUMAN ERYTHROPOIETIN [Concomitant]
     Active Substance: ERYTHROPOIETIN
     Dosage: 9999 IU, PRN
     Route: 061
     Dates: start: 20151108, end: 20151108
  38. OMEPRAZOLE SODIUM [Concomitant]
     Active Substance: OMEPRAZOLE SODIUM
     Indication: GASTRITIS PROPHYLAXIS
     Dosage: 40 MG, PRN
     Route: 042
     Dates: start: 20151028, end: 20151028
  39. MEROPENEM. [Concomitant]
     Active Substance: MEROPENEM
     Dosage: 500 MG, QD
     Route: 042
     Dates: start: 20151121, end: 20151122
  40. MICAFUNGIN SODIUM [Concomitant]
     Active Substance: MICAFUNGIN SODIUM
     Indication: INFLAMMATION
     Dosage: 100 MG, PRN
     Route: 042
     Dates: start: 20151114, end: 20151115
  41. DICLOFENAC SODIUM. [Concomitant]
     Active Substance: DICLOFENAC SODIUM
     Indication: SEIZURE
     Dosage: 2 DF, PRN
     Route: 030
     Dates: start: 20151021, end: 20151021
  42. SODIUM NITROPRUSSIDE. [Concomitant]
     Active Substance: SODIUM NITROPRUSSIDE
     Indication: BLOOD PRESSURE INCREASED
     Dosage: 150 MG, PRN
     Route: 042
     Dates: start: 20151120, end: 20151120
  43. FUROSEMIDE. [Concomitant]
     Active Substance: FUROSEMIDE
     Dosage: 120 MG, PRN
     Route: 042
     Dates: start: 20151030, end: 20151030
  44. MYCOPHENOLATE MOFETIL. [Suspect]
     Active Substance: MYCOPHENOLATE MOFETIL
     Indication: PROPHYLAXIS AGAINST TRANSPLANT REJECTION
     Dosage: 1000 MG, QD
     Route: 065
     Dates: start: 20151028, end: 20151028
  45. METHYLPREDNISOLONE. [Suspect]
     Active Substance: METHYLPREDNISOLONE
     Dosage: 400 MG, QD
     Route: 065
     Dates: start: 20151103, end: 20151103
  46. METHYLPREDNISOLONE. [Suspect]
     Active Substance: METHYLPREDNISOLONE
     Dosage: 80 MG, QD
     Route: 065
     Dates: start: 20151120, end: 20151120
  47. PREDNISONE. [Suspect]
     Active Substance: PREDNISONE
     Dosage: 20 MG, QD
     Route: 065
     Dates: start: 20151112, end: 20151115
  48. AMINOMETHYLBENZOIC ACID [Concomitant]
     Active Substance: AMINOMETHYLBENZOIC ACID
     Indication: HAEMOSTASIS
     Dosage: 200 MG, PRN
     Route: 042
     Dates: start: 20151122, end: 20151122
  49. OSELTAMIVIR PHOSPHATE. [Concomitant]
     Active Substance: OSELTAMIVIR PHOSPHATE
     Indication: ANTIVIRAL PROPHYLAXIS
     Dosage: 150 MG, PRN
     Route: 048
     Dates: start: 20151114, end: 20151114
  50. POTASSIUM CHLORIDE. [Concomitant]
     Active Substance: POTASSIUM CHLORIDE
     Indication: MINERAL SUPPLEMENTATION
     Dosage: 1000 MG, TID
     Route: 048
     Dates: start: 20151106, end: 20151112
  51. CALCIUM GLUCONATE. [Concomitant]
     Active Substance: CALCIUM GLUCONATE
     Dosage: 10 ML, PRN
     Route: 042
     Dates: start: 20151122, end: 20151122
  52. ALPROSTADIL. [Concomitant]
     Active Substance: ALPROSTADIL
     Dosage: 10 UG, PRN
     Route: 042
     Dates: start: 20151102, end: 20151102
  53. ALPROSTADIL. [Concomitant]
     Active Substance: ALPROSTADIL
     Dosage: 20 UG, QD
     Dates: start: 20171123, end: 20171123
  54. ALPROSTADIL. [Concomitant]
     Active Substance: ALPROSTADIL
     Dosage: 20 UG, PRN
     Route: 042
     Dates: start: 20180221, end: 20180221
  55. HUMAN ALBUMIN [Concomitant]
     Active Substance: ALBUMIN HUMAN
     Dosage: 10 G, QD
     Route: 042
     Dates: start: 20151116, end: 20151122
  56. SODIUM BICARBONATE. [Concomitant]
     Active Substance: SODIUM BICARBONATE
     Indication: PRODUCT USED FOR UNKNOWN INDICATION
     Dosage: 125 ML, PRN
     Route: 042
     Dates: start: 20151120, end: 20151120
  57. AMBROXOL HYDROCHLORIDE [Concomitant]
     Active Substance: AMBROXOL HYDROCHLORIDE
     Dosage: 150 MG, PRN
     Route: 042
     Dates: start: 20151117, end: 20151117
  58. DOBUTAMINE HYDROCHLORIDE. [Concomitant]
     Active Substance: DOBUTAMINE HYDROCHLORIDE
     Indication: BLOOD PRESSURE INCREASED
     Dosage: 20 MG, PRN
     Route: 042
     Dates: start: 20151122, end: 20151122
  59. PROMETHAZINE [Concomitant]
     Active Substance: PROMETHAZINE\PROMETHAZINE HYDROCHLORIDE
     Dosage: 25 MG, QD
     Route: 030
     Dates: start: 20151105, end: 20151112
  60. INSULIN [Concomitant]
     Active Substance: INSULIN NOS
     Indication: PRODUCT USED FOR UNKNOWN INDICATION
     Dosage: 4 IU, PRN
     Route: 042
     Dates: start: 20151120, end: 20151120
  61. MAGNESIUM ISOGLYCYRRHIZINATE [Concomitant]
     Active Substance: MAGNESIUM ISOGLYCYRRHIZINATE
     Dosage: 40 ML, QD
     Route: 042
     Dates: start: 20151121, end: 20151122
  62. RECOMBINANT HUMAN ERYTHROPOIETIN [Concomitant]
     Active Substance: ERYTHROPOIETIN
     Dosage: 9999 IU, PRN
     Route: 061
     Dates: start: 20151031, end: 20151031
  63. RECOMBINANT HUMAN ERYTHROPOIETIN [Concomitant]
     Active Substance: ERYTHROPOIETIN
     Dosage: 9999 IU, PRN
     Route: 061
     Dates: start: 20151102, end: 20151102
  64. RECOMBINANT HUMAN ERYTHROPOIETIN [Concomitant]
     Active Substance: ERYTHROPOIETIN
     Dosage: 9999 IU, PRN
     Route: 061
     Dates: start: 20151111, end: 20151111
  65. RECOMBINANT HUMAN ERYTHROPOIETIN [Concomitant]
     Active Substance: ERYTHROPOIETIN
     Dosage: 9999 IU, PRN
     Route: 061
     Dates: start: 20151121, end: 20151121
  66. OMEPRAZOLE SODIUM [Concomitant]
     Active Substance: OMEPRAZOLE SODIUM
     Dosage: 40 MG, BID
     Route: 042
     Dates: start: 20151031, end: 20151103
  67. OMEPRAZOLE SODIUM [Concomitant]
     Active Substance: OMEPRAZOLE SODIUM
     Dosage: 40 MG, BID
     Route: 042
     Dates: start: 20151105, end: 20151121
  68. DEPAKINE [Concomitant]
     Active Substance: VALPROATE SODIUM
     Dosage: 1 DF, PRN
     Route: 042
     Dates: start: 20151121, end: 20151121
  69. DEPAKINE [Concomitant]
     Active Substance: VALPROATE SODIUM
     Dosage: 3 DF, PRN
     Route: 042
     Dates: start: 20151119, end: 20151119
  70. HEPARIN SODIUM. [Concomitant]
     Active Substance: HEPARIN SODIUM
     Indication: PRODUCT USED FOR UNKNOWN INDICATION
     Dosage: 2500 IU, PRN
     Route: 042
     Dates: start: 20151031, end: 20151031
  71. DOXOFYLLINE [Concomitant]
     Active Substance: DOXOFYLLINE
     Indication: WHEEZING
     Dosage: 200 MG, PRN
     Route: 042
     Dates: start: 20151029, end: 20151029
  72. DOXOFYLLINE [Concomitant]
     Active Substance: DOXOFYLLINE
     Dosage: 200 MG, QD
     Route: 042
     Dates: start: 20151029, end: 20151031
  73. PHOSPHOCREATINE SODIUM [Concomitant]
     Active Substance: PHOSPHOCREATINE SODIUM
     Dosage: 1 G, QD
     Route: 042
     Dates: start: 20151029, end: 20151031
  74. DICLOFENAC SODIUM. [Concomitant]
     Active Substance: DICLOFENAC SODIUM
     Indication: ANALGESIC THERAPY
  75. TEICOPLANIN [Concomitant]
     Active Substance: TEICOPLANIN
     Dosage: 200 MG, QD
     Route: 042
     Dates: start: 20151117, end: 20151120
  76. FUROSEMIDE. [Concomitant]
     Active Substance: FUROSEMIDE
     Dosage: 40 MG, QD
     Route: 042
     Dates: start: 20151118, end: 20151120
  77. MYFORTIC [Suspect]
     Active Substance: MYCOPHENOLATE SODIUM
     Indication: RENAL TRANSPLANT
     Dosage: 1440 MG, QD
     Route: 065
     Dates: start: 20151029, end: 20151029
  78. CICLOSPORIN [Suspect]
     Active Substance: CYCLOSPORINE
     Dosage: 200 MG, QD
     Route: 065
     Dates: start: 20151112, end: 20151115
  79. METHYLPREDNISOLONE. [Suspect]
     Active Substance: METHYLPREDNISOLONE
     Dosage: 40 MG, QD
     Route: 065
     Dates: start: 20151115, end: 20151120
  80. METHYLPREDNISOLONE. [Suspect]
     Active Substance: METHYLPREDNISOLONE
     Dosage: 40 MG, QD
     Route: 065
     Dates: start: 20151120, end: 20151120
  81. PREDNISONE. [Suspect]
     Active Substance: PREDNISONE
     Indication: PROPHYLAXIS AGAINST TRANSPLANT REJECTION
     Dosage: 20 MG, QD
     Route: 065
     Dates: start: 20151031, end: 20151105
  82. SODIUM CHLORIDE. [Concomitant]
     Active Substance: SODIUM CHLORIDE
     Dosage: 250 ML, PRN
     Route: 042
     Dates: start: 20151030, end: 20151030
  83. SODIUM CHLORIDE. [Concomitant]
     Active Substance: SODIUM CHLORIDE
     Dosage: 100 ML, QD
     Route: 042
     Dates: start: 20151116, end: 20151122
  84. SODIUM CHLORIDE. [Concomitant]
     Active Substance: SODIUM CHLORIDE
     Dosage: 100 ML, PRN
     Route: 042
     Dates: start: 20151105, end: 20151105
  85. SODIUM CHLORIDE. [Concomitant]
     Active Substance: SODIUM CHLORIDE
     Dosage: 1500 ML, PRN
     Route: 042
     Dates: start: 20151029, end: 20151029
  86. PHENOBARBITAL. [Concomitant]
     Active Substance: PHENOBARBITAL
     Indication: SEDATION
     Dosage: 100 MG, PRN
     Route: 030
     Dates: start: 20151028, end: 20151028
  87. FLUCONAZOLE. [Concomitant]
     Active Substance: FLUCONAZOLE
     Dosage: 400 MG, QD
     Route: 042
     Dates: start: 20151121, end: 20151122
  88. AB-ATROPINE SULFAT [Concomitant]
     Indication: PRODUCT USED FOR UNKNOWN INDICATION
     Dosage: 21 MG, PRN
     Route: 042
     Dates: start: 20151122, end: 20151122
  89. SCOPOLAMINE HYDROBROMIDE. [Concomitant]
     Active Substance: SCOPOLAMINE HYDROBROMIDE
     Indication: ABDOMINAL DISCOMFORT
     Dosage: 300 UG, PRN
     Route: 030
     Dates: start: 20151028, end: 20151028
  90. DESLANOSIDE [Concomitant]
     Active Substance: DESLANOSIDE
     Dosage: 0.4 MG, PRN
     Route: 042
     Dates: start: 20151122, end: 20151122
  91. HUMAN ALBUMIN [Concomitant]
     Active Substance: ALBUMIN HUMAN
     Dosage: 50 ML, BID
     Route: 042
     Dates: start: 20171128, end: 20171130
  92. BUDESONIDE. [Concomitant]
     Active Substance: BUDESONIDE
     Indication: PRODUCTIVE COUGH
     Dosage: 1 DF, TID
     Route: 055
     Dates: start: 20151029, end: 20151105
  93. IPRATROPIUM BROMIDE. [Concomitant]
     Active Substance: IPRATROPIUM BROMIDE
     Indication: PRODUCTIVE COUGH
     Dosage: 1 DF, TID
     Route: 055
     Dates: start: 20151029, end: 20151105
  94. ADRENALINE HYDROCHLORIDE [Concomitant]
     Active Substance: EPINEPHRINE HYDROCHLORIDE
     Indication: PRODUCT USED FOR UNKNOWN INDICATION
     Dosage: 5 MG, PRN
     Dates: start: 20151122, end: 20151122
  95. MAGNESIUM ISOGLYCYRRHIZINATE [Concomitant]
     Active Substance: MAGNESIUM ISOGLYCYRRHIZINATE
     Indication: PROPHYLAXIS
     Dosage: 40 ML, PRN
     Route: 042
     Dates: start: 20151029, end: 20151029
  96. IRON SUCROSE [Concomitant]
     Active Substance: IRON SUCROSE
     Dosage: 1 DF, QD
     Route: 042
     Dates: start: 20151031, end: 20151105
  97. RECOMBINANT HUMAN ERYTHROPOIETIN [Concomitant]
     Active Substance: ERYTHROPOIETIN
     Indication: PRODUCT USED FOR UNKNOWN INDICATION
     Dosage: 9999 IU, PRN
     Route: 061
     Dates: start: 20151029, end: 20151029
  98. DEPAKINE [Concomitant]
     Active Substance: VALPROATE SODIUM
     Indication: EPILEPSY
     Dosage: 2 DF, PRN
     Route: 042
     Dates: start: 20151120, end: 20151120
  99. DEPAKINE [Concomitant]
     Active Substance: VALPROATE SODIUM
     Dosage: 3 DF, PRN
     Route: 042
     Dates: start: 20151121, end: 20151121
  100. COENZYME COMPLEX [Concomitant]
     Active Substance: UNSPECIFIED INGREDIENT
     Dosage: 2 DF, QD
     Route: 042
     Dates: start: 20151029, end: 20151031
  101. MICAFUNGIN SODIUM [Concomitant]
     Active Substance: MICAFUNGIN SODIUM
     Dosage: 50 MG, QD
     Route: 042
     Dates: start: 20151115, end: 20151115
  102. PENICILLIN [Concomitant]
     Active Substance: PENICILLIN
     Indication: HYPERSENSITIVITY
     Dosage: 80 IU, PRN
     Route: 042
     Dates: start: 20151121, end: 20151121
  103. ULINASTATIN [Concomitant]
     Active Substance: ULINASTATIN
     Indication: CARDIOVASCULAR INSUFFICIENCY
     Dosage: 20 IU, PRN
     Route: 042
     Dates: start: 20151121, end: 20151121
  104. FUROSEMIDE. [Concomitant]
     Active Substance: FUROSEMIDE
     Dosage: 40 MG, PRN
     Route: 042
     Dates: start: 20151104, end: 20151105
  105. FUROSEMIDE. [Concomitant]
     Active Substance: FUROSEMIDE
     Dosage: 80 MG, PRN
     Route: 042
     Dates: start: 20151102, end: 20151103
  106. FUROSEMIDE. [Concomitant]
     Active Substance: FUROSEMIDE
     Dosage: 80 MG, PRN
     Route: 042
     Dates: start: 20151114, end: 20151114
  107. CICLOSPORIN [Suspect]
     Active Substance: CYCLOSPORINE
     Indication: RENAL TRANSPLANT
     Dosage: 250 MG, QD
     Route: 065
     Dates: start: 20151031, end: 20151102
  108. TACROLIMUS. [Suspect]
     Active Substance: TACROLIMUS
     Indication: PROPHYLAXIS AGAINST TRANSPLANT REJECTION
     Dosage: 5 MG, QD
     Route: 065
     Dates: start: 20151029, end: 20151031
  109. SODIUM CHLORIDE. [Concomitant]
     Active Substance: SODIUM CHLORIDE
     Dosage: 100 ML, PRN
     Route: 042
     Dates: start: 20151028, end: 20151028
  110. SODIUM CHLORIDE. [Concomitant]
     Active Substance: SODIUM CHLORIDE
     Dosage: 250 ML, PRN
     Route: 042
     Dates: start: 20151120, end: 20151120
  111. SODIUM CHLORIDE. [Concomitant]
     Active Substance: SODIUM CHLORIDE
     Dosage: 500 ML, PRN
     Route: 042
     Dates: start: 20151020, end: 20151101
  112. BACILLICHEN [Concomitant]
     Indication: DIARRHOEA
     Dosage: 500 MG, TID
     Route: 048
     Dates: start: 20151119, end: 20151120
  113. MOTILIUM [Concomitant]
     Active Substance: DOMPERIDONE
     Indication: ABDOMINAL DISTENSION
     Dosage: 10 MG, TID
     Route: 048
     Dates: start: 20151119, end: 20151120
  114. ETAMSYLATE [Concomitant]
     Active Substance: ETHAMSYLATE
     Indication: HAEMOSTASIS
     Dosage: 2000 MG, PRN
     Route: 042
     Dates: start: 20151122, end: 20151122
  115. BETALOC [Concomitant]
     Active Substance: METOPROLOL TARTRATE
     Dosage: 5 MG, PRN
     Route: 048
     Dates: start: 20151031, end: 20151031
  116. OSELTAMIVIR PHOSPHATE. [Concomitant]
     Active Substance: OSELTAMIVIR PHOSPHATE
     Dosage: 75 MG, BID
     Route: 048
     Dates: start: 20151115, end: 20151120
  117. NIKETHAMIDE [Concomitant]
     Active Substance: NIKETHAMIDE
     Indication: PRODUCT USED FOR UNKNOWN INDICATION
     Dosage: 375 MG, PRN
     Route: 042
     Dates: start: 20151120, end: 20151120
  118. ALPROSTADIL. [Concomitant]
     Active Substance: ALPROSTADIL
     Dosage: 10 UG, PRN
     Route: 042
     Dates: start: 20151028, end: 20151028
  119. ALPROSTADIL. [Concomitant]
     Active Substance: ALPROSTADIL
     Dosage: 10 UG, QD
     Route: 042
     Dates: start: 20151102, end: 20151105
  120. ALPROSTADIL. [Concomitant]
     Active Substance: ALPROSTADIL
     Dosage: 20 UG, QD
     Route: 042
     Dates: start: 20170209, end: 20170224
  121. ALPROSTADIL. [Concomitant]
     Active Substance: ALPROSTADIL
     Dosage: 20 UG, QD
     Route: 042
     Dates: start: 20180221, end: 20180221
  122. HUMAN ALBUMIN [Concomitant]
     Active Substance: ALBUMIN HUMAN
     Dosage: 10 G, PRN
     Route: 042
     Dates: start: 20151029, end: 20151029
  123. COMPOUND SODIUM LACTATE RINGER LACTAT [Concomitant]
     Indication: PRODUCT USED FOR UNKNOWN INDICATION
     Dosage: 2000 ML, PRN
     Route: 042
     Dates: start: 20151029, end: 20151029
  124. PIPERACILLIN/TAZOBACTAM [Concomitant]
     Active Substance: PIPERACILLIN SODIUM\TAZOBACTAM SODIUM
     Indication: ANTI-INFECTIVE THERAPY
     Dosage: 1 DF, TID
     Route: 042
     Dates: start: 20151121, end: 20151122
  125. VIT K1 [Concomitant]
     Active Substance: PHYTONADIONE
     Dosage: 20 MG, PRN
     Route: 042
     Dates: start: 20151122, end: 20151122
  126. BUDESONIDE. [Concomitant]
     Active Substance: BUDESONIDE
     Dosage: 1 DF, TID
     Route: 055
     Dates: start: 20151111, end: 20151120
  127. NIFEDIPINE. [Concomitant]
     Active Substance: NIFEDIPINE
     Indication: BLOOD PRESSURE INCREASED
     Dosage: 30 MG, PRN
     Route: 048
     Dates: start: 20151031, end: 20151031
  128. NIFEDIPINE. [Concomitant]
     Active Substance: NIFEDIPINE
     Dosage: 30 MG, QD
     Route: 048
     Dates: start: 20151103, end: 20151103
  129. AMBROXOL HYDROCHLORIDE [Concomitant]
     Active Substance: AMBROXOL HYDROCHLORIDE
     Indication: PRODUCTIVE COUGH
     Dosage: 15 MG, TID
     Route: 042
     Dates: start: 20151029, end: 20151105
  130. AMBROXOL HYDROCHLORIDE [Concomitant]
     Active Substance: AMBROXOL HYDROCHLORIDE
     Dosage: 15 MG, TID
     Route: 042
     Dates: start: 20151111, end: 20151120
  131. AMBROXOL HYDROCHLORIDE [Concomitant]
     Active Substance: AMBROXOL HYDROCHLORIDE
     Dosage: 150 MG, BID
     Route: 042
     Dates: start: 20151120, end: 20151122
  132. AMBROXOL HYDROCHLORIDE [Concomitant]
     Active Substance: AMBROXOL HYDROCHLORIDE
     Dosage: 15 MG, TID
     Route: 042
     Dates: start: 20161003
  133. CETIRIZINE HYDROCHLORIDE. [Concomitant]
     Active Substance: CETIRIZINE HYDROCHLORIDE
     Dosage: 10 MG, QD
     Route: 048
     Dates: start: 20151105, end: 20151112
  134. IRON SUCROSE [Concomitant]
     Active Substance: IRON SUCROSE
     Dosage: 1 DF, QD
     Route: 042
     Dates: start: 20151105, end: 20151113
  135. OMEPRAZOLE SODIUM [Concomitant]
     Active Substance: OMEPRAZOLE SODIUM
     Dosage: 40 MG, BID
     Route: 042
     Dates: start: 20151029, end: 20151031
  136. OMEPRAZOLE SODIUM [Concomitant]
     Active Substance: OMEPRAZOLE SODIUM
     Dosage: 40 MG, PRN
     Route: 042
     Dates: start: 20151103, end: 20151103
  137. METHYLPREDNISOLONE NA SUCCINATE [Concomitant]
     Active Substance: METHYLPREDNISOLONE SODIUM SUCCINATE
     Indication: HYPERSENSITIVITY
     Dosage: 80 MG, PRN
     Route: 042
     Dates: start: 20151105, end: 20151105
  138. VANCOMYCIN HYDROCHLORIDE. [Concomitant]
     Active Substance: VANCOMYCIN HYDROCHLORIDE
     Indication: INFLAMMATION
     Dosage: 500 MG, PRN
     Route: 042
     Dates: start: 20151113, end: 20151113
  139. TACROLIMUS. [Suspect]
     Active Substance: TACROLIMUS
     Dosage: 3.5 MG, QD
     Route: 065
     Dates: start: 20151111, end: 20151111
  140. ANTITHYMOCYTE IMMUNOGLOBULIN (RABBIT) [Suspect]
     Active Substance: LAPINE T-LYMPHOCYTE IMMUNE GLOBULIN
     Indication: PROPHYLAXIS AGAINST TRANSPLANT REJECTION
     Dosage: 100 MG, QD
     Route: 065
     Dates: start: 20151105, end: 20151112
  141. SODIUM CHLORIDE. [Concomitant]
     Active Substance: SODIUM CHLORIDE
     Dosage: 100 ML, QD
     Route: 042
     Dates: start: 20151105, end: 20151112
  142. PHENOBARBITAL. [Concomitant]
     Active Substance: PHENOBARBITAL
     Dosage: 100 MG, PRN
     Route: 042
     Dates: start: 20151119, end: 20151119
  143. PARACETAMOL [Concomitant]
     Active Substance: ACETAMINOPHEN
     Indication: BODY TEMPERATURE INCREASED
     Dosage: 250 MG, PRN
     Route: 050
     Dates: start: 20151120, end: 20151120
  144. OSELTAMIVIR PHOSPHATE. [Concomitant]
     Active Substance: OSELTAMIVIR PHOSPHATE
     Dosage: 75 MG, PRN
     Route: 048
     Dates: start: 20151115, end: 20151115
  145. MOSAPRIDE [Concomitant]
     Active Substance: MOSAPRIDE
     Indication: ABDOMINAL DISTENSION
     Dosage: 5 MG, TID
     Route: 048
     Dates: start: 20151119, end: 20151120
  146. HUMAN ALBUMIN [Concomitant]
     Active Substance: ALBUMIN HUMAN
     Dosage: 20 G, QD
     Route: 042
     Dates: start: 20151030, end: 20151101
  147. HUMAN ALBUMIN [Concomitant]
     Active Substance: ALBUMIN HUMAN
     Dosage: 20 G, QD
     Route: 042
     Dates: start: 20151108, end: 20151108
  148. SODIUM BICARBONATE. [Concomitant]
     Active Substance: SODIUM BICARBONATE
     Dosage: 2000 ML, BID
     Route: 042
     Dates: start: 20171123, end: 20171123
  149. NIFEDIPINE. [Concomitant]
     Active Substance: NIFEDIPINE
     Dosage: 30 MG, QD
     Route: 048
     Dates: start: 20151118, end: 20151118
  150. DILTIAZEM HYDROCHLORIDE. [Concomitant]
     Active Substance: DILTIAZEM HYDROCHLORIDE
     Dosage: 30 MG, BID
     Route: 048
     Dates: start: 20151104, end: 20151109
  151. DOPAMINE HYDROCHLORIDE. [Concomitant]
     Active Substance: DOPAMINE HYDROCHLORIDE
     Indication: BLOOD PRESSURE INCREASED
     Dosage: 10 MG, QD
     Route: 042
     Dates: start: 20151030, end: 20151105
  152. DOPAMINE HYDROCHLORIDE. [Concomitant]
     Active Substance: DOPAMINE HYDROCHLORIDE
     Dosage: 180 MG, PRN
     Route: 042
     Dates: start: 20151121, end: 20151121
  153. RECOMBINANT HUMAN ERYTHROPOIETIN [Concomitant]
     Active Substance: ERYTHROPOIETIN
     Dosage: 9999 IU, PRN
     Route: 061
     Dates: start: 20151105, end: 20151105
  154. ESOMEPRAZOLE SODIUM. [Concomitant]
     Active Substance: ESOMEPRAZOLE SODIUM
     Indication: GASTRITIS PROPHYLAXIS
     Dosage: 40 MG, PRN
     Route: 042
     Dates: start: 20151121, end: 20151121
  155. ESOMEPRAZOLE SODIUM. [Concomitant]
     Active Substance: ESOMEPRAZOLE SODIUM
     Dosage: 40 MG, BID
     Route: 042
     Dates: start: 20151121, end: 20151122
  156. HEPARIN SODIUM. [Concomitant]
     Active Substance: HEPARIN SODIUM
     Dosage: 2500 IU, UNK
     Route: 042
     Dates: start: 20151031, end: 20151112
  157. DOXOFYLLINE [Concomitant]
     Active Substance: DOXOFYLLINE
     Dosage: 200 MG, PRN
     Route: 042
     Dates: start: 20151112, end: 20151112
  158. DOXOFYLLINE [Concomitant]
     Active Substance: DOXOFYLLINE
     Dosage: 200 MG, BID
     Route: 042
     Dates: start: 20151112, end: 20151122
  159. MEROPENEM. [Concomitant]
     Active Substance: MEROPENEM
     Indication: ANTI-INFECTIVE THERAPY
     Dosage: 500 MG, PRN
     Route: 042
     Dates: start: 20151112, end: 20151112
  160. CEPHAZOLINE SODIUM [Concomitant]
     Active Substance: CEFAZOLIN SODIUM
     Indication: PRODUCT USED FOR UNKNOWN INDICATION
     Dosage: 500 MG, PRN
     Route: 061
     Dates: start: 20151029, end: 20151029
  161. FUROSEMIDE. [Concomitant]
     Active Substance: FUROSEMIDE
     Indication: POLYURIA
     Dosage: 200 MG, PRN
     Route: 042
     Dates: start: 20151029, end: 20151029
  162. FUROSEMIDE. [Concomitant]
     Active Substance: FUROSEMIDE
     Dosage: 40 MG, PRN
     Route: 042
     Dates: start: 20151121, end: 20151121
  163. METOPROLOL TARTRATE. [Concomitant]
     Active Substance: METOPROLOL TARTRATE
     Indication: PRODUCT USED FOR UNKNOWN INDICATION
     Dosage: 25 MG, PRN
     Route: 048
     Dates: start: 20151031, end: 20151031
  164. CICLOSPORIN [Suspect]
     Active Substance: CYCLOSPORINE
     Indication: PROPHYLAXIS AGAINST TRANSPLANT REJECTION
     Dosage: 200 MG, QD
     Route: 065
     Dates: start: 20151103, end: 20151103
  165. CICLOSPORIN [Suspect]
     Active Substance: CYCLOSPORINE
     Dosage: 75 MG, QD
     Route: 065
     Dates: start: 20151104, end: 20151104
  166. TACROLIMUS. [Suspect]
     Active Substance: TACROLIMUS
     Dosage: 2 MG, QD
     Route: 065
     Dates: start: 20151104, end: 20151104
  167. SODIUM CHLORIDE. [Concomitant]
     Active Substance: SODIUM CHLORIDE
     Dosage: 2000 ML, PRN
     Route: 042
     Dates: start: 20151029, end: 20151029
  168. ALPROSTADIL. [Concomitant]
     Active Substance: ALPROSTADIL
     Dosage: 20 UG, QD
     Route: 042
     Dates: start: 20180107, end: 20180107
  169. HUMAN ALBUMIN [Concomitant]
     Active Substance: ALBUMIN HUMAN
     Dosage: 20 G, PRN
     Route: 042
     Dates: start: 20151109, end: 20151109
  170. HUMAN ALBUMIN [Concomitant]
     Active Substance: ALBUMIN HUMAN
     Dosage: 10 G, BID
     Route: 042
     Dates: start: 20151121, end: 20151122
  171. COMPOUND SODIUM LACTATE RINGER LACTAT [Concomitant]
     Dosage: 500 ML, PRN
     Route: 042
     Dates: start: 20151101, end: 20151102
  172. VITAMIN C [Concomitant]
     Active Substance: ASCORBIC ACID
     Indication: PRODUCT USED FOR UNKNOWN INDICATION
     Dosage: 4000 MG, PRN
     Route: 042
     Dates: start: 20151120, end: 20151120
  173. AMBROXOL HYDROCHLORIDE [Concomitant]
     Active Substance: AMBROXOL HYDROCHLORIDE
     Dosage: 30 MG, TID
     Route: 042
     Dates: start: 20151112, end: 20151117
  174. AMBROXOL HYDROCHLORIDE [Concomitant]
     Active Substance: AMBROXOL HYDROCHLORIDE
     Dosage: 30 MG, TID
     Route: 042
     Dates: start: 20151029, end: 20151105
  175. DOPAMINE HYDROCHLORIDE. [Concomitant]
     Active Substance: DOPAMINE HYDROCHLORIDE
     Dosage: 120 MG, PRN
     Route: 042
     Dates: start: 20151031, end: 20151101
  176. DOPAMINE HYDROCHLORIDE. [Concomitant]
     Active Substance: DOPAMINE HYDROCHLORIDE
     Dosage: 420 MG, PRN
     Route: 042
     Dates: start: 20151122, end: 20151122
  177. LOBELINE HYDROCHLORIDE [Concomitant]
     Indication: PRODUCT USED FOR UNKNOWN INDICATION
     Dosage: 3 MG, PRN
     Route: 042
     Dates: start: 20151120, end: 20151120
  178. MOXIFLOXACIN HYDROCHLORIDE. [Concomitant]
     Active Substance: MOXIFLOXACIN HYDROCHLORIDE
     Indication: INFLAMMATION
     Dosage: 400 MG, PRN
     Route: 042
     Dates: start: 20151113, end: 20151113
  179. PROMETHAZINE [Concomitant]
     Active Substance: PROMETHAZINE\PROMETHAZINE HYDROCHLORIDE
     Indication: HYPERSENSITIVITY
     Dosage: 25 MG, PRN
     Route: 030
     Dates: start: 20151030, end: 20151030
  180. PROMETHAZINE [Concomitant]
     Active Substance: PROMETHAZINE\PROMETHAZINE HYDROCHLORIDE
     Dosage: 25 MG, PRN
     Route: 030
     Dates: start: 20151105, end: 20151105
  181. RECOMBINANT HUMAN ERYTHROPOIETIN [Concomitant]
     Active Substance: ERYTHROPOIETIN
     Dosage: 9999 IU, PRN
     Route: 061
     Dates: start: 20151119, end: 20151119
  182. COENZYME COMPLEX [Concomitant]
     Active Substance: UNSPECIFIED INGREDIENT
     Indication: PRODUCT USED FOR UNKNOWN INDICATION
     Dosage: 2 DF, PRN
     Route: 042
     Dates: start: 20151029, end: 20151029
  183. METHYLPREDNISOLONE NA SUCCINATE [Concomitant]
     Active Substance: METHYLPREDNISOLONE SODIUM SUCCINATE
     Dosage: 40 MG, QD
     Route: 042
     Dates: start: 20151105, end: 20151112
  184. MEROPENEM. [Concomitant]
     Active Substance: MEROPENEM
     Indication: INFLAMMATION
     Dosage: 500 MG, TID
     Route: 042
     Dates: start: 20151112, end: 20151113
  185. MICAFUNGIN SODIUM [Concomitant]
     Active Substance: MICAFUNGIN SODIUM
     Indication: ANTI-INFECTIVE THERAPY
     Dosage: 100 MG, QD
     Route: 042
     Dates: start: 20151115, end: 20151115
  186. TEICOPLANIN [Concomitant]
     Active Substance: TEICOPLANIN
     Indication: ANTI-INFECTIVE THERAPY
     Dosage: 400 MG, QD
     Route: 042
     Dates: start: 20151117, end: 20151117
  187. VANCOMYCIN HYDROCHLORIDE. [Concomitant]
     Active Substance: VANCOMYCIN HYDROCHLORIDE
     Indication: ANTI-INFECTIVE THERAPY
     Dosage: 500 MG, BID
     Route: 042
     Dates: start: 20151113, end: 20151117
  188. FUROSEMIDE. [Concomitant]
     Active Substance: FUROSEMIDE
     Dosage: 120 MG, PRN
     Route: 042
     Dates: start: 20151031, end: 20151031
  189. FUROSEMIDE. [Concomitant]
     Active Substance: FUROSEMIDE
     Dosage: 40 MG, PRN
     Route: 042
     Dates: start: 20151031, end: 20151101
  190. FUROSEMIDE. [Concomitant]
     Active Substance: FUROSEMIDE
     Dosage: 40 MG, PRN
     Route: 042
     Dates: start: 20151111, end: 20151111
  191. FUROSEMIDE. [Concomitant]
     Active Substance: FUROSEMIDE
     Dosage: 40 MG, PRN
     Route: 042
     Dates: start: 20151116, end: 20151116
  192. FUROSEMIDE. [Concomitant]
     Active Substance: FUROSEMIDE
     Dosage: 80 MG, PRN
     Route: 042
     Dates: start: 20151107, end: 20151110
  193. FUROSEMIDE. [Concomitant]
     Active Substance: FUROSEMIDE
     Dosage: 80 MG, PRN
     Route: 042
     Dates: start: 20151115, end: 20151115
  194. MYFORTIC [Suspect]
     Active Substance: MYCOPHENOLATE SODIUM
     Dosage: 360 MG, QD
     Route: 065
     Dates: start: 20151105, end: 20151110
  195. METHYLPREDNISOLONE. [Suspect]
     Active Substance: METHYLPREDNISOLONE
     Dosage: 400 MG, QD
     Route: 065
     Dates: start: 20151030, end: 20151030
  196. METHYLPREDNISOLONE. [Suspect]
     Active Substance: METHYLPREDNISOLONE
     Dosage: 360 MG, QD
     Route: 065
     Dates: start: 20151031, end: 20151031
  197. SODIUM CHLORIDE. [Concomitant]
     Active Substance: SODIUM CHLORIDE
     Indication: PRODUCT USED FOR UNKNOWN INDICATION
     Dosage: 100 ML, QD
     Route: 042
     Dates: start: 20151020, end: 20151101
  198. SODIUM CHLORIDE. [Concomitant]
     Active Substance: SODIUM CHLORIDE
     Dosage: 100 ML, PRN
     Route: 042
     Dates: start: 20151029, end: 20151029
  199. SODIUM CHLORIDE. [Concomitant]
     Active Substance: SODIUM CHLORIDE
     Dosage: 500 ML, PRN
     Route: 042
     Dates: start: 20151031, end: 20151031
  200. DIAZEPAM. [Concomitant]
     Active Substance: DIAZEPAM
     Indication: SEDATION
     Dosage: 20 MG, PRN
     Route: 042
     Dates: start: 20151119, end: 20151119
  201. SMECTA [Concomitant]
     Active Substance: MONTMORILLONITE
     Indication: DIARRHOEA
     Dosage: 6 G, PRN
     Route: 048
     Dates: start: 20151101, end: 20151101
  202. SODIUM CHLORIDE. [Concomitant]
     Active Substance: SODIUM CHLORIDE
     Indication: SUPPLEMENTATION THERAPY
     Dosage: 30 ML, PRN
     Route: 042
     Dates: start: 20151120, end: 20151120
  203. ALPROSTADIL. [Concomitant]
     Active Substance: ALPROSTADIL
     Dosage: 10 UG, QD
     Route: 042
     Dates: start: 20151105, end: 20151120
  204. HUMAN ALBUMIN [Concomitant]
     Active Substance: ALBUMIN HUMAN
     Dosage: 10 G, PRN
     Route: 042
     Dates: start: 20151121, end: 20151121
  205. HUMAN ALBUMIN [Concomitant]
     Active Substance: ALBUMIN HUMAN
     Dosage: 100 ML, BID
     Route: 042
     Dates: start: 20171123, end: 20171128
  206. VITAMIN B6 [Concomitant]
     Active Substance: PYRIDOXINE HYDROCHLORIDE
     Indication: PRODUCT USED FOR UNKNOWN INDICATION
     Dosage: 400 MG, PRN
     Route: 042
     Dates: start: 20151120, end: 20151120
  207. APO NITROGLYCERIN [Concomitant]
     Indication: BLOOD PRESSURE INCREASED
     Dosage: 20 MG, PRN
     Route: 042
     Dates: start: 20151120, end: 20151120
  208. APO NITROGLYCERIN [Concomitant]
     Dosage: 10 MG, PRN
     Route: 042
     Dates: start: 20151101, end: 20151102
  209. AMBROXOL HYDROCHLORIDE [Concomitant]
     Active Substance: AMBROXOL HYDROCHLORIDE
     Indication: PROPHYLAXIS
     Dosage: 30 MG, TID
     Route: 042
     Dates: start: 20151029, end: 20151105
  210. DOPAMINE HYDROCHLORIDE. [Concomitant]
     Active Substance: DOPAMINE HYDROCHLORIDE
     Indication: CARDIOVASCULAR INSUFFICIENCY
     Dosage: 10 MG, PRN
     Route: 042
     Dates: start: 20151029, end: 20151030
  211. OMEPRAZOLE SODIUM [Concomitant]
     Active Substance: OMEPRAZOLE SODIUM
     Dosage: 40 MG, PRN
     Route: 042
     Dates: start: 20151029, end: 20151029
  212. OMEPRAZOLE SODIUM [Concomitant]
     Active Substance: OMEPRAZOLE SODIUM
     Dosage: 40 MG, BID
     Route: 042
     Dates: start: 20151103, end: 20151105
  213. HAEMOCOAGULASE [Concomitant]
     Indication: HAEMOSTASIS
     Dosage: 1 IU, PRN
     Route: 042
     Dates: start: 20151122, end: 20151122
  214. MEROPENEM. [Concomitant]
     Active Substance: MEROPENEM
     Dosage: 500 MG, TID
     Route: 042
     Dates: start: 20151117, end: 20151121
  215. FUROSEMIDE. [Concomitant]
     Active Substance: FUROSEMIDE
     Dosage: 40 MG, QD
     Route: 042
     Dates: start: 20151030, end: 20151106
  216. LEVOCARNITINE. [Concomitant]
     Active Substance: LEVOCARNITINE
     Dosage: 2 DF, QD
     Route: 042
     Dates: start: 20151029, end: 20151031
  217. LEVOFLOXACIN. [Concomitant]
     Active Substance: LEVOFLOXACIN
     Indication: ANTI-INFECTIVE THERAPY
     Dosage: 100 ML, PRN
     Route: 042
     Dates: start: 20151029, end: 20151029
  218. CICLOSPORIN [Suspect]
     Active Substance: CYCLOSPORINE
     Dosage: 250 MG, QD
     Route: 065
     Dates: start: 20151116, end: 20151120
  219. METHYLPREDNISOLONE. [Suspect]
     Active Substance: METHYLPREDNISOLONE
     Indication: PROPHYLAXIS AGAINST TRANSPLANT REJECTION
     Dosage: 500 MG, QD
     Route: 065
     Dates: start: 20151028, end: 20151028
  220. SODIUM CHLORIDE. [Concomitant]
     Active Substance: SODIUM CHLORIDE
     Dosage: 50 ML, BID
     Route: 042
     Dates: start: 20151121, end: 20151122
  221. OXCARBAZEPINE. [Concomitant]
     Active Substance: OXCARBAZEPINE
     Indication: EPILEPSY
     Dosage: 3000 MG, PRN
     Route: 048
     Dates: start: 20151120, end: 20151120
  222. DEPAKINE [Concomitant]
     Active Substance: VALPROATE SODIUM
     Indication: EPILEPSY
     Dosage: 300 ML, PRN
     Route: 048
     Dates: start: 20151120, end: 20151120
  223. FLUCONAZOLE. [Concomitant]
     Active Substance: FLUCONAZOLE
     Indication: ANTI-INFECTIVE THERAPY
     Dosage: 400 MG, PRN
     Route: 042
     Dates: start: 20151121, end: 20151121
  224. GLUTAMINE [Concomitant]
     Active Substance: GLUTAMINE
     Indication: GASTRITIS PROPHYLAXIS
     Dosage: 670 MG, TID
     Route: 048
     Dates: start: 20151119, end: 20151120
  225. BETALOC [Concomitant]
     Active Substance: METOPROLOL TARTRATE
     Indication: BLOOD PRESSURE INCREASED
     Dosage: 5 MG, PRN
     Route: 048
     Dates: start: 20151029, end: 20151029
  226. CANCIDAS [Concomitant]
     Active Substance: CASPOFUNGIN ACETATE
     Indication: ANTI-INFECTIVE THERAPY
     Dosage: 70 MG, PRN
     Route: 042
     Dates: start: 20151117, end: 20151117
  227. CANCIDAS [Concomitant]
     Active Substance: CASPOFUNGIN ACETATE
     Dosage: 50 MG, PRN
     Route: 042
     Dates: start: 20151117, end: 20151121
  228. ALPROSTADIL. [Concomitant]
     Active Substance: ALPROSTADIL
     Indication: CARDIOVASCULAR INSUFFICIENCY
     Dosage: 30 UG, PRN
     Route: 042
     Dates: start: 20151021, end: 20151021
  229. ALPROSTADIL. [Concomitant]
     Active Substance: ALPROSTADIL
     Dosage: 10 UG, QD
     Route: 042
     Dates: start: 20151029, end: 20151031
  230. DESLANOSIDE [Concomitant]
     Active Substance: DESLANOSIDE
     Indication: CARDIAC FAILURE
     Dosage: 400 UG, PRN
     Route: 042
     Dates: start: 20151121, end: 20151121
  231. HUMAN ALBUMIN [Concomitant]
     Active Substance: ALBUMIN HUMAN
     Indication: PRODUCT USED FOR UNKNOWN INDICATION
     Dosage: 10 G, PRN
     Route: 042
     Dates: start: 20151028, end: 20151028
  232. IPRATROPIUM BROMIDE. [Concomitant]
     Active Substance: IPRATROPIUM BROMIDE
     Dosage: 1 DF, TID
     Route: 055
     Dates: start: 20151111, end: 20151120
  233. AMBROXOL HYDROCHLORIDE [Concomitant]
     Active Substance: AMBROXOL HYDROCHLORIDE
     Dosage: 150 MG, PRN
     Route: 042
     Dates: start: 20151122, end: 20151122
  234. MOXIFLOXACIN HYDROCHLORIDE. [Concomitant]
     Active Substance: MOXIFLOXACIN HYDROCHLORIDE
     Indication: ANTI-INFECTIVE THERAPY
     Dosage: 400 MG, QD
     Route: 042
     Dates: start: 20151113, end: 20151117
  235. TRIMETAZIDINE HYDROCHLORIDE [Concomitant]
     Active Substance: TRIMETAZIDINE DIHYDROCHLORIDE
     Indication: PROPHYLAXIS
     Dosage: 20 MG, TID
     Route: 048
     Dates: start: 20151030, end: 20151120
  236. IRON SUCROSE [Concomitant]
     Active Substance: IRON SUCROSE
     Indication: PRODUCT USED FOR UNKNOWN INDICATION
     Dosage: 2 DF, QD
     Route: 042
     Dates: start: 20151029, end: 20151029
  237. IRON SUCROSE [Concomitant]
     Active Substance: IRON SUCROSE
     Dosage: 2 DF, QD
     Route: 042
     Dates: start: 20151029, end: 20151031
  238. NORADRENALINI TARTRAS [Concomitant]
     Indication: PRODUCT USED FOR UNKNOWN INDICATION
     Dosage: 10.5 MG, PRN
     Route: 042
     Dates: start: 20151122, end: 20151122
  239. RECOMBINANT HUMAN ERYTHROPOIETIN [Concomitant]
     Active Substance: ERYTHROPOIETIN
     Dosage: 150 UG, PRN
     Route: 061
     Dates: start: 20151121, end: 20151121
  240. PHOSPHOCREATINE SODIUM [Concomitant]
     Active Substance: PHOSPHOCREATINE SODIUM
     Indication: PROPHYLAXIS
     Dosage: 2000 MG, PRN
     Route: 042
     Dates: start: 20151029, end: 20151029
  241. MICAFUNGIN SODIUM [Concomitant]
     Active Substance: MICAFUNGIN SODIUM
     Dosage: 150 MG, QD
     Route: 042
     Dates: start: 20151115, end: 20151116
  242. CEFOTIAM HYDROCHLORIDE [Concomitant]
     Active Substance: CEFOTIAM HYDROCHLORIDE
     Indication: INFLAMMATION
     Dosage: 2000 MG, BID
     Route: 042
     Dates: start: 20151029, end: 20151104
  243. CEFOTIAM HYDROCHLORIDE [Concomitant]
     Active Substance: CEFOTIAM HYDROCHLORIDE
     Indication: INFECTION PROPHYLAXIS
  244. LEVOCARNITINE. [Concomitant]
     Active Substance: LEVOCARNITINE
     Indication: DISCOMFORT
     Dosage: 2 DF, PRN
     Route: 042
     Dates: start: 20151029, end: 20151029
  245. LEVOFLOXACIN. [Concomitant]
     Active Substance: LEVOFLOXACIN
     Indication: INFLAMMATION
     Dosage: 100 ML, PRN
     Route: 042
     Dates: start: 20151028, end: 20151028

REACTIONS (13)
  - Multiple organ dysfunction syndrome [Unknown]
  - Red blood cells urine positive [Unknown]
  - Blood albumin decreased [Unknown]
  - Blood urea increased [Unknown]
  - Diarrhoea [Recovering/Resolving]
  - Disseminated intravascular coagulation [Unknown]
  - Protein urine present [Unknown]
  - Haemoglobin increased [Not Recovered/Not Resolved]
  - Lymphocyte count decreased [Unknown]
  - Haemoglobin decreased [Not Recovered/Not Resolved]
  - Blood glucose increased [Unknown]
  - C-reactive protein increased [Unknown]
  - Neutrophil count decreased [Unknown]

NARRATIVE: CASE EVENT DATE: 20151031
